FAERS Safety Report 23072790 (Version 1)
Quarter: 2023Q4

REPORT INFORMATION
  Report Type: Spontaneous
  Country: US (occurrence: US)
  Receive Date: 20231017
  Receipt Date: 20231017
  Transmission Date: 20240110
  Serious: No
  Sender: FDA-Public Use
  Company Number: US-GILEAD-2023-0647245

PATIENT
  Age: 57 Year
  Sex: Female
  Weight: 89.8 kg

DRUGS (19)
  1. LETAIRIS [Suspect]
     Active Substance: AMBRISENTAN
     Indication: Product used for unknown indication
     Dosage: UNK
     Route: 065
  2. ORENITRAM [Suspect]
     Active Substance: TREPROSTINIL
     Indication: Pulmonary arterial hypertension
     Dosage: 2.5 MG, TID
     Route: 048
     Dates: start: 20221222, end: 202308
  3. ORENITRAM [Suspect]
     Active Substance: TREPROSTINIL
     Dosage: UNK
     Route: 048
  4. SILDENAFIL CITRATE [Concomitant]
     Active Substance: SILDENAFIL CITRATE
  5. SEVELAMER CARBONATE [Concomitant]
     Active Substance: SEVELAMER CARBONATE
  6. INSULIN LISPRO [Concomitant]
     Active Substance: INSULIN LISPRO
  7. AYR [GUAIFENESIN;THEOPHYLLINE] [Concomitant]
  8. MIDODRINE HYDROCHLORIDE [Concomitant]
     Active Substance: MIDODRINE HYDROCHLORIDE
  9. TRELEGY ELLIPTA [Concomitant]
     Active Substance: FLUTICASONE FUROATE\UMECLIDINIUM BROMIDE\VILANTEROL TRIFENATATE
  10. FLOVENT HFA [Concomitant]
     Active Substance: FLUTICASONE PROPIONATE
  11. FLUTICASONE PROPIONATE [Concomitant]
     Active Substance: FLUTICASONE PROPIONATE
  12. VITAMINS [Concomitant]
     Active Substance: VITAMINS
  13. HEPARIN LOCK FLUSH [Concomitant]
     Active Substance: HEPARIN SODIUM
  14. OXYGEN [Concomitant]
     Active Substance: OXYGEN
  15. ASPIRIN [Concomitant]
     Active Substance: ASPIRIN
  16. TYLENOL [Concomitant]
     Active Substance: ACETAMINOPHEN
  17. LANTUS SOLOSTAR [Concomitant]
     Active Substance: INSULIN GLARGINE
  18. IMODIUM [Concomitant]
     Active Substance: LOPERAMIDE HYDROCHLORIDE
  19. ITCH RELIEF [Concomitant]

REACTIONS (9)
  - Diarrhoea [Unknown]
  - Epistaxis [Unknown]
  - Blood pressure decreased [Unknown]
  - Vomiting [Unknown]
  - Abdominal discomfort [Unknown]
  - Abdominal pain upper [Unknown]
  - Dizziness [Unknown]
  - Headache [Unknown]
  - Presyncope [Unknown]
